FAERS Safety Report 17871695 (Version 2)
Quarter: 2020Q3

REPORT INFORMATION
  Report Type: Spontaneous
  Country: US (occurrence: US)
  Receive Date: 20200608
  Receipt Date: 20200710
  Transmission Date: 20201103
  Serious: Yes (Other)
  Sender: FDA-Public Use
  Company Number: US-ELI_LILLY_AND_COMPANY-US202006003093

PATIENT
  Age: 86 Year
  Sex: Male

DRUGS (1)
  1. ALIMTA [Suspect]
     Active Substance: PEMETREXED DISODIUM
     Indication: NON-SMALL CELL LUNG CANCER
     Dosage: UNK, UNKNOWN
     Route: 065

REACTIONS (7)
  - Weight decreased [Unknown]
  - Eyelid margin crusting [Recovering/Resolving]
  - Eyelid skin dryness [Unknown]
  - Hypersomnia [Unknown]
  - Coccydynia [Not Recovered/Not Resolved]
  - Haemorrhage [Recovering/Resolving]
  - Dry eye [Unknown]

NARRATIVE: CASE EVENT DATE: 202002
